FAERS Safety Report 11377375 (Version 2)
Quarter: 2015Q3

REPORT INFORMATION
  Report Type: Spontaneous
  Country: US (occurrence: US)
  Receive Date: 20150811
  Receipt Date: 20150903
  Transmission Date: 20151125
  Serious: No
  Sender: FDA-Public Use
  Company Number: US-ELI_LILLY_AND_COMPANY-US200811005314

PATIENT
  Age: 68 Year
  Sex: Female

DRUGS (9)
  1. HUMULIN N [Suspect]
     Active Substance: INSULIN HUMAN
     Indication: DIABETES MELLITUS
  2. ASPIRIN. [Concomitant]
     Active Substance: ASPIRIN
     Dosage: 81 MG, DAILY (1/D)
  3. CLARITIN [Concomitant]
     Active Substance: LORATADINE
     Dosage: 1 UNK, DAILY (1/D)
  4. HUMALOG [Suspect]
     Active Substance: INSULIN LISPRO
     Indication: DIABETES MELLITUS
     Dosage: 0.5 U, UNK
     Dates: start: 20081120
  5. HUMULIN R [Suspect]
     Active Substance: INSULIN HUMAN
  6. VITAMIN B [Concomitant]
     Active Substance: VITAMIN B
     Dosage: 1000 UG, WEEKLY (1/W)
     Route: 030
  7. BACTROBAN /00753901/ [Concomitant]
  8. FISH OIL [Concomitant]
     Active Substance: FISH OIL
     Dosage: 1200 MG, 2/D
  9. CALTRATE [Concomitant]
     Active Substance: CALCIUM CARBONATE
     Dosage: 600 MG, DAILY (1/D)

REACTIONS (8)
  - Heart rate increased [Recovered/Resolved]
  - Anxiety [Not Recovered/Not Resolved]
  - Formication [Recovered/Resolved]
  - Blood glucose increased [Recovered/Resolved]
  - Hypersensitivity [Not Recovered/Not Resolved]
  - Tremor [Recovered/Resolved]
  - Fear [Not Recovered/Not Resolved]
  - Nervousness [Recovered/Resolved]

NARRATIVE: CASE EVENT DATE: 1997
